FAERS Safety Report 8805869 (Version 1)
Quarter: 2012Q4

REPORT INFORMATION
  Report Type: Spontaneous
  Country: US (occurrence: None)
  Receive Date: 20120917
  Receipt Date: 20120917
  Transmission Date: 20130627
  Serious: Yes (Hospitalization)
  Sender: FDA-Public Use
  Company Number: US-GDP-12414953

PATIENT
  Age: 44 Year
  Sex: Male
  Weight: 85.3 kg

DRUGS (5)
  1. CLOBEX [Suspect]
     Indication: PRODUCT USED FOR UNKNOWN INDICATION
     Dosage: (2 DF QD)
  2. REMICADE [Suspect]
     Indication: PSORIASIS
     Dosage: (25jun20112  to continuing weeks(1 DF 1x8 to continuing  5mg/ kg Intravenous (not otherwise specified) )
     Route: 042
     Dates: start: 20120625, end: 20120914
  3. METHOTREXATE [Suspect]
     Indication: PRODUCT USED FOR UNKNOWN INDICATION
     Dosage: (17.5 mg 1X/ week)
  4. ACETAMINOPHEN [Concomitant]
  5. ANTIHISTAMINES [Concomitant]

REACTIONS (1)
  - Bursitis [None]
